FAERS Safety Report 11031013 (Version 1)
Quarter: 2015Q2

REPORT INFORMATION
  Report Type: Spontaneous
  Country: PL (occurrence: PL)
  Receive Date: 20150415
  Receipt Date: 20150415
  Transmission Date: 20150821
  Serious: Yes (Hospitalization, Other)
  Sender: FDA-Public Use
  Company Number: PL-PFIZER INC-2015122132

PATIENT
  Age: 70 Year
  Sex: Male

DRUGS (1)
  1. AXITINIB [Suspect]
     Active Substance: AXITINIB
     Dosage: 5 MG, 2X/DAY
     Dates: start: 201409

REACTIONS (4)
  - Atrial flutter [Unknown]
  - Hypertension [Unknown]
  - Diarrhoea [Unknown]
  - Proteinuria [Unknown]
